FAERS Safety Report 5107762-9 (Version None)
Quarter: 2006Q3

REPORT INFORMATION
  Report Type: 
  Country: None (occurrence: None)
  Receive Date: 20060914
  Receipt Date: 20060810
  Transmission Date: 20061208
  Serious: Yes (Hospitalization)
  Sender: FDA-Public Use
  Company Number: 228854

PATIENT
  Age: 43 Year
  Sex: Female
  Weight: 64.2 kg

DRUGS (1)
  1. RITUXAN [Suspect]
     Indication: RHEUMATOID ARTHRITIS
     Dosage: DAYS 1+15, INTRAVENOUS
     Route: 042
     Dates: start: 20060808, end: 20060808

REACTIONS (1)
  - ANAPHYLACTIC REACTION [None]
